FAERS Safety Report 10136244 (Version 1)
Quarter: 2014Q2

REPORT INFORMATION
  Report Type: Spontaneous
  Country: NO (occurrence: NO)
  Receive Date: 20140429
  Receipt Date: 20140429
  Transmission Date: 20141212
  Serious: Yes (Other)
  Sender: FDA-Public Use
  Company Number: NO-009507513-1404NOR012709

PATIENT
  Age: 61 Year
  Sex: Female
  Weight: 65 kg

DRUGS (2)
  1. MAXALT [Suspect]
     Indication: MIGRAINE
     Dosage: 1 TABLET AT THE ONSET OF MIGRANE. 1 MORE WHEN NEEDED.
     Route: 048
     Dates: start: 20090601, end: 20131123
  2. IBUX [Concomitant]
     Indication: OSTEOARTHRITIS
     Route: 048
     Dates: start: 20060101, end: 20140420

REACTIONS (2)
  - Migraine [Recovered/Resolved]
  - Urticaria [Recovered/Resolved]
